FAERS Safety Report 6642533-3 (Version None)
Quarter: 2010Q1

REPORT INFORMATION
  Report Type: 
  Country: None (occurrence: None)
  Receive Date: 20100319
  Receipt Date: 20100308
  Transmission Date: 20100710
  Serious: Yes (Hospitalization)
  Sender: FDA-Public Use
  Company Number: CN-JNJFOC-20100201672

PATIENT
  Age: 55 Year
  Sex: Female

DRUGS (2)
  1. REMICADE [Suspect]
     Indication: POLYARTHRITIS
     Route: 030
  2. REMICADE [Suspect]
     Route: 030

REACTIONS (1)
  - DISSEMINATED TUBERCULOSIS [None]
